FAERS Safety Report 4381375-9 (Version None)
Quarter: 2004Q2

REPORT INFORMATION
  Report Type: 
  Country: None (occurrence: None)
  Receive Date: 20040616
  Receipt Date: 20040607
  Transmission Date: 20050107
  Serious: Yes (Other)
  Sender: FDA-Public Use
  Company Number: ZONI001444

PATIENT
  Age: 55 Year
  Sex: Male

DRUGS (7)
  1. ZONEGRAN [Suspect]
     Indication: FIBROMYALGIA
     Dosage: 200 MG DAILY ORAL
     Route: 048
     Dates: start: 20040517, end: 20040603
  2. ZANAFLEX [Suspect]
     Indication: MUSCLE RELAXANT THERAPY
     Dates: start: 20040510
  3. CLONIDINE [Concomitant]
  4. AVINZA (MORPHINE SULAFTE) [Concomitant]
  5. PROVIGIL [Concomitant]
  6. MELATONIN (MELATONIN) [Concomitant]
  7. ANDROGEL (TESTOSTERONE GEL) [Concomitant]

REACTIONS (13)
  - AGITATION [None]
  - ASTHENIA [None]
  - CONFUSIONAL STATE [None]
  - DISTURBANCE IN ATTENTION [None]
  - DRY MOUTH [None]
  - DYSGEUSIA [None]
  - DYSPHASIA [None]
  - IRRITABILITY [None]
  - MEMORY IMPAIRMENT [None]
  - MENTAL IMPAIRMENT [None]
  - PRURITUS [None]
  - SOMNOLENCE [None]
  - VISION BLURRED [None]
